FAERS Safety Report 23769318 (Version 1)
Quarter: 2024Q2

REPORT INFORMATION
  Report Type: Spontaneous
  Country: US (occurrence: None)
  Receive Date: 20240420
  Receipt Date: 20240420
  Transmission Date: 20240717
  Serious: Yes (Life-Threatening, Hospitalization, Disabling)
  Sender: FDA-Public Use
  Company Number: None

PATIENT
  Age: 17 Year
  Sex: 0
  Weight: 97.65 kg

DRUGS (1)
  1. HUMIRA [Suspect]
     Active Substance: ADALIMUMAB
     Indication: Crohn^s disease
     Dates: start: 20240306, end: 20240316

REACTIONS (14)
  - Cough [None]
  - Dyspnoea [None]
  - Vomiting [None]
  - Gait disturbance [None]
  - Loss of consciousness [None]
  - Seizure [None]
  - Dehydration [None]
  - Crohn^s disease [None]
  - Illness [None]
  - Palpitations [None]
  - Hypotension [None]
  - Dizziness [None]
  - Asthenia [None]
  - Pallor [None]

NARRATIVE: CASE EVENT DATE: 20240313
